FAERS Safety Report 14406348 (Version 1)
Quarter: 2018Q1

REPORT INFORMATION
  Report Type: Spontaneous
  Country: US (occurrence: US)
  Receive Date: 20180118
  Receipt Date: 20180118
  Transmission Date: 20180509
  Serious: Yes (Disabling)
  Sender: FDA-Public Use
  Company Number: None

PATIENT
  Age: 55 Year
  Sex: Female
  Weight: 109.32 kg

DRUGS (19)
  1. COQ10 [Concomitant]
     Active Substance: UBIDECARENONE
  2. ZANTAC [Concomitant]
     Active Substance: RANITIDINE HYDROCHLORIDE
  3. VITAMIN D3 [Concomitant]
     Active Substance: CHOLECALCIFEROL
  4. ALPRAZOLAM GENERIC FOR: XANAX [Suspect]
     Active Substance: ALPRAZOLAM
     Indication: ANXIETY
     Dosage: 0.5MG 1/2 TABLET TWO TIMES PER DAY AS NEEDED BY MOUTH
     Route: 048
     Dates: start: 20121111
  5. FERROUS SULFATE. [Concomitant]
     Active Substance: FERROUS SULFATE
  6. VITAMIN C [Concomitant]
     Active Substance: ASCORBIC ACID
  7. CYMBALTA [Concomitant]
     Active Substance: DULOXETINE HYDROCHLORIDE
  8. CLARATIN [Concomitant]
  9. MULTI VIT (FOR 50+) [Concomitant]
  10. FLUTICASONE. [Concomitant]
     Active Substance: FLUTICASONE
  11. SALINE SPRAY [Concomitant]
     Active Substance: SODIUM CHLORIDE
  12. POTASSIUM CHLORIDE. [Concomitant]
     Active Substance: POTASSIUM CHLORIDE
  13. LASIX [Concomitant]
     Active Substance: FUROSEMIDE
  14. PRAVASTATIN. [Concomitant]
     Active Substance: PRAVASTATIN
  15. VIACTIV CALCIUM CHEWS [Concomitant]
     Active Substance: CALCIUM\VITAMIN D\VITAMIN K5
  16. GLUCOSAMIN/CHONDROITIN [Concomitant]
  17. ADVIL [Concomitant]
     Active Substance: IBUPROFEN
  18. VITAMIN E [Concomitant]
     Active Substance: .ALPHA.-TOCOPHEROL
  19. ATENOLOL. [Concomitant]
     Active Substance: ATENOLOL

REACTIONS (5)
  - Stress [None]
  - Weight decreased [None]
  - Drug effect decreased [None]
  - Product substitution issue [None]
  - Sleep disorder [None]

NARRATIVE: CASE EVENT DATE: 20170927
